FAERS Safety Report 16107570 (Version 1)
Quarter: 2019Q1

REPORT INFORMATION
  Report Type: Spontaneous
  Country: AE (occurrence: AE)
  Receive Date: 20190322
  Receipt Date: 20190322
  Transmission Date: 20190418
  Serious: No
  Sender: FDA-Public Use
  Company Number: AE-OMEROS CORPORATION-2018OME00004

PATIENT
  Age: 26 Year
  Sex: Male

DRUGS (1)
  1. OMIDRIA [Suspect]
     Active Substance: KETOROLAC\PHENYLEPHRINE
     Indication: VITRECTOMY
     Dosage: UNK
     Dates: start: 20180918

REACTIONS (2)
  - Medication error [Recovered/Resolved]
  - Vitreous haze [Recovered/Resolved]

NARRATIVE: CASE EVENT DATE: 20180918
